FAERS Safety Report 7259716-4 (Version None)
Quarter: 2011Q1

REPORT INFORMATION
  Report Type: 
  Country: None (occurrence: None)
  Receive Date: 20110130
  Receipt Date: 20100915
  Transmission Date: 20110831
  Serious: Yes (Hospitalization)
  Sender: FDA-Public Use
  Company Number: US-ABBOTT-10P-163-0657729-00

PATIENT
  Sex: Female
  Weight: 63.56 kg

DRUGS (1)
  1. HUMIRA [Suspect]
     Indication: CROHN'S DISEASE

REACTIONS (6)
  - SEPSIS [None]
  - RESPIRATORY TRACT INFECTION [None]
  - NAUSEA [None]
  - VOMITING [None]
  - CELLULITIS [None]
  - URINARY TRACT INFECTION [None]
